FAERS Safety Report 12124480 (Version 3)
Quarter: 2016Q3

REPORT INFORMATION
  Report Type: Spontaneous
  Country: IT (occurrence: IT)
  Receive Date: 20160229
  Receipt Date: 20160711
  Transmission Date: 20161109
  Serious: Yes (Other)
  Sender: FDA-Public Use
  Company Number: IT-AMGEN-ITASP2016022993

PATIENT
  Age: 78 Year
  Sex: Male
  Weight: 57 kg

DRUGS (9)
  1. OMNIC [Concomitant]
     Active Substance: TAMSULOSIN HYDROCHLORIDE
     Indication: BENIGN PROSTATIC HYPERPLASIA
     Dosage: 1 POSOLOGIC UNIT
     Route: 048
  2. FLUOROURACIL. [Concomitant]
     Active Substance: FLUOROURACIL
     Indication: RECTAL ADENOCARCINOMA
     Dosage: 500 MG, UNK
     Route: 042
     Dates: start: 20150812, end: 20160215
  3. AZOPT [Concomitant]
     Active Substance: BRINZOLAMIDE
     Indication: GLAUCOMA
     Dosage: UNK
  4. PANTOPRAZOLO [Concomitant]
     Active Substance: PANTOPRAZOLE SODIUM
     Dosage: 20 MG, UNK
     Route: 048
  5. CLEXANE [Concomitant]
     Active Substance: ENOXAPARIN SODIUM
     Dosage: UNK
  6. VECTIBIX [Suspect]
     Active Substance: PANITUMUMAB
     Indication: RECTAL ADENOCARCINOMA
     Dosage: 6 MG/KG, CYCLIC
     Route: 042
     Dates: start: 20150812, end: 20160215
  7. OXALIPLATINUM [Concomitant]
     Active Substance: OXALIPLATIN
     Indication: RECTAL ADENOCARCINOMA
     Dosage: 120 MG, UNK
     Dates: start: 20150812, end: 20160215
  8. SOTALOLO [Concomitant]
     Indication: HYPERTENSIVE CARDIOMYOPATHY
     Dosage: UNK
  9. INUVER [Concomitant]
     Dosage: 4 POSOLOGIC UNIT
     Route: 045

REACTIONS (5)
  - Erythema [Recovered/Resolved]
  - Skin burning sensation [Recovered/Resolved]
  - Diarrhoea [Unknown]
  - Rash pustular [Recovered/Resolved]
  - Skin fissures [Recovered/Resolved]

NARRATIVE: CASE EVENT DATE: 20150812
